FAERS Safety Report 16072925 (Version 2)
Quarter: 2020Q2

REPORT INFORMATION
  Report Type: Spontaneous
  Country: US (occurrence: US)
  Receive Date: 20190314
  Receipt Date: 20200424
  Transmission Date: 20200713
  Serious: Yes (Death)
  Sender: FDA-Public Use
  Company Number: US-PFIZER INC-2019111426

PATIENT
  Age: 69 Year
  Sex: Male

DRUGS (1)
  1. ELELYSO [Suspect]
     Active Substance: TALIGLUCERASE ALFA
     Dosage: UNK

REACTIONS (4)
  - Death [Fatal]
  - Malaise [Unknown]
  - Amnesia [Unknown]
  - Asthenia [Unknown]

NARRATIVE: CASE EVENT DATE: 20200417
